FAERS Safety Report 4809995-5 (Version None)
Quarter: 2005Q4

REPORT INFORMATION
  Report Type: 
  Country: None (occurrence: None)
  Receive Date: 20051024
  Receipt Date: 20051006
  Transmission Date: 20060501
  Serious: Yes (Other)
  Sender: FDA-Public Use
  Company Number: 032-41

PATIENT
  Sex: Female

DRUGS (2)
  1. TEVETEN [Suspect]
     Indication: HYPERTENSION
     Dates: start: 20050101
  2. EPILEPSY MEDICATION [Concomitant]

REACTIONS (2)
  - CONDITION AGGRAVATED [None]
  - EPILEPSY [None]
